FAERS Safety Report 4899871-4 (Version None)
Quarter: 2006Q1

REPORT INFORMATION
  Report Type: 
  Country: None (occurrence: None)
  Receive Date: 20060118
  Receipt Date: 20050623
  Transmission Date: 20060701
  Serious: No
  Sender: FDA-Public Use
  Company Number: 2005000080

PATIENT
  Age: 72 Year
  Sex: Female

DRUGS (5)
  1. TARCEVA [Suspect]
     Indication: NON-SMALL CELL LUNG CANCER
     Dosage: 150 MG (QD), ORAL; 75 MG (QD), ORAL
     Route: 048
     Dates: start: 20050107, end: 20050109
  2. OMEGA 3 (FISH OIL) [Concomitant]
  3. MULTIVITAMIN [Concomitant]
  4. LIPITOR [Concomitant]
  5. ZETIA [Concomitant]

REACTIONS (14)
  - DIARRHOEA [None]
  - DRY EYE [None]
  - DYSPHONIA [None]
  - DYSPNOEA [None]
  - EAR PAIN [None]
  - EYELID OEDEMA [None]
  - FLUSHING [None]
  - GASTROINTESTINAL DISORDER [None]
  - HEADACHE [None]
  - HEPATIC ENZYME INCREASED [None]
  - PHARYNGOLARYNGEAL PAIN [None]
  - PYREXIA [None]
  - SKIN FISSURES [None]
  - STOMATITIS [None]
